FAERS Safety Report 5079671-5 (Version None)
Quarter: 2006Q3

REPORT INFORMATION
  Report Type: 
  Country: None (occurrence: None)
  Receive Date: 20060808
  Receipt Date: 20060724
  Transmission Date: 20061208
  Serious: No
  Sender: FDA-Public Use
  Company Number: US200511001517

PATIENT
  Sex: Female
  Weight: 2.4 kg

DRUGS (2)
  1. INSULIN [Suspect]
     Dosage: TRANSPLACENTAL
     Route: 064
  2. INSULIN [Suspect]
     Dosage: TRANSPLACENTAL
     Route: 064

REACTIONS (4)
  - DRUG EXPOSURE DURING PREGNANCY [None]
  - PREMATURE BABY [None]
  - SMALL FOR DATES BABY [None]
  - STUBBORNNESS [None]
